FAERS Safety Report 7728875-9 (Version None)
Quarter: 2011Q3

REPORT INFORMATION
  Report Type: 
  Country: None (occurrence: None)
  Receive Date: 20110831
  Receipt Date: 20110816
  Transmission Date: 20111222
  Serious: Yes (Life-Threatening, Other)
  Sender: FDA-Public Use
  Company Number: 2011MA012010

PATIENT
  Age: 55 Year
  Sex: Male

DRUGS (3)
  1. ESOMEPRAZOLE (ESOMEPRAZOLE) [Suspect]
     Indication: PRODUCT USED FOR UNKNOWN INDICATION
     Dosage: 40 MG, QD
  2. IBUPROFEN [Suspect]
     Indication: DRUG ABUSE
     Dosage: 18 GM, QD
  3. CODEINE SULFATE [Suspect]
     Indication: DRUG ABUSE

REACTIONS (7)
  - INTENTIONAL DRUG MISUSE [None]
  - RENAL TUBULAR NECROSIS [None]
  - BLOOD CHLORIDE INCREASED [None]
  - BLOOD BICARBONATE DECREASED [None]
  - BLOOD CREATINE INCREASED [None]
  - BLOOD PH DECREASED [None]
  - BLOOD POTASSIUM DECREASED [None]
